FAERS Safety Report 9432989 (Version 2)
Quarter: 2013Q3

REPORT INFORMATION
  Report Type: Spontaneous
  Country: ZA (occurrence: ZA)
  Receive Date: 20130731
  Receipt Date: 20130813
  Transmission Date: 20140515
  Serious: Yes (Other)
  Sender: FDA-Public Use
  Company Number: ZA-JNJFOC-20130715086

PATIENT
  Age: 73 Year
  Sex: Male

DRUGS (1)
  1. TRAMACET [Suspect]
     Indication: BACK PAIN
     Route: 048
     Dates: start: 2012

REACTIONS (5)
  - Intentional drug misuse [Not Recovered/Not Resolved]
  - Confusional state [Not Recovered/Not Resolved]
  - Disturbance in attention [Not Recovered/Not Resolved]
  - Aggression [Not Recovered/Not Resolved]
  - Social avoidant behaviour [Not Recovered/Not Resolved]
